FAERS Safety Report 16938624 (Version 1)
Quarter: 2019Q4

REPORT INFORMATION
  Report Type: Spontaneous
  Country: US (occurrence: US)
  Receive Date: 20190828
  Receipt Date: 20190828
  Transmission Date: 20200122
  Serious: Yes (Other)
  Sender: FDA-Public Use
  Company Number: None

PATIENT
  Age: 76 Year
  Sex: Female
  Weight: 87.54 kg

DRUGS (19)
  1. DICLOFENAC [Concomitant]
     Active Substance: DICLOFENAC
  2. GABAPENTIN. [Concomitant]
     Active Substance: GABAPENTIN
  3. ASPIRIN. [Concomitant]
     Active Substance: ASPIRIN
  4. LASTACAFT [Concomitant]
     Active Substance: ALCAFTADINE
  5. LATANOPROST. [Concomitant]
     Active Substance: LATANOPROST
  6. RANITIDINE. [Concomitant]
     Active Substance: RANITIDINE
  7. LEVOTHYROXINE. [Concomitant]
     Active Substance: LEVOTHYROXINE
  8. ACYCLOVIR. [Concomitant]
     Active Substance: ACYCLOVIR
  9. CALCIUM WITH VITAMIN D3 [Concomitant]
     Active Substance: CALCIUM CARBONATE\CHOLECALCIFEROL
  10. DEXAMETHASONE. [Concomitant]
     Active Substance: DEXAMETHASONE
  11. IMODIUM AD [Concomitant]
     Active Substance: LOPERAMIDE HYDROCHLORIDE
  12. NORCO [Concomitant]
     Active Substance: ACETAMINOPHEN\HYDROCODONE BITARTRATE
  13. OMEPRAZOLE. [Concomitant]
     Active Substance: OMEPRAZOLE
  14. VELCADE [Suspect]
     Active Substance: BORTEZOMIB
     Indication: PLASMA CELL MYELOMA
     Dates: end: 20190730
  15. OXYBUTYNIN. [Concomitant]
     Active Substance: OXYBUTYNIN CHLORIDE
  16. VITAMIN B COMPLEX [Concomitant]
     Active Substance: CYANOCOBALAMIN\DEXPANTHENOL\NIACINAMIDE\PYRIDOXINE HYDROCHLORIDE\RIBOFLAVIN 5^-PHOSPHATE SODIUM\THIAMINE HYDROCHLORIDE\VITAMIN B COMPLEX
  17. ESCITALOPRAM [Concomitant]
     Active Substance: ESCITALOPRAM OXALATE
  18. BUDESONIDE. [Concomitant]
     Active Substance: BUDESONIDE
  19. LIDODERM [Concomitant]
     Active Substance: LIDOCAINE

REACTIONS (2)
  - Rash [None]
  - Tremor [None]

NARRATIVE: CASE EVENT DATE: 20190809
